FAERS Safety Report 6832586-1 (Version None)
Quarter: 2010Q3

REPORT INFORMATION
  Report Type: 
  Country: None (occurrence: None)
  Receive Date: 20100712
  Receipt Date: 20100628
  Transmission Date: 20110219
  Serious: Yes (Life-Threatening, Other)
  Sender: FDA-Public Use
  Company Number: GB-MYLANLABS-2010S1011644

PATIENT
  Age: 43 Year
  Sex: Female

DRUGS (8)
  1. MELOXICAM [Suspect]
     Indication: PAIN IN EXTREMITY
     Dates: end: 20100612
  2. ASPIRIN [Concomitant]
  3. ATORVASTATIN CALCIUM [Concomitant]
  4. BISOPROLOL FUMARATE [Concomitant]
  5. GLYCERYL TRINITRATE [Concomitant]
  6. LORATADINE [Concomitant]
  7. OMEPRAZOLE [Concomitant]
  8. RAMIPRIL [Concomitant]

REACTIONS (2)
  - CORONARY ARTERY DISSECTION [None]
  - MYOCARDIAL INFARCTION [None]
